FAERS Safety Report 22399592 (Version 2)
Quarter: 2023Q2

REPORT INFORMATION
  Report Type: Report from Study
  Country: KR (occurrence: KR)
  Receive Date: 20230602
  Receipt Date: 20230609
  Transmission Date: 20230722
  Serious: Yes (Hospitalization, Other)
  Sender: FDA-Public Use
  Company Number: KR-CELLTRION INC.-2023KR010932

PATIENT

DRUGS (17)
  1. RITUXIMAB [Suspect]
     Active Substance: RITUXIMAB
     Indication: Chronic lymphocytic leukaemia
     Dosage: 562.5 MG, CYCLICAL
     Route: 042
     Dates: start: 20221109
  2. RITUXIMAB [Suspect]
     Active Substance: RITUXIMAB
     Dosage: 750 MG, CYCLICAL
     Route: 042
     Dates: start: 20221207, end: 20230308
  3. RITUXIMAB [Suspect]
     Active Substance: RITUXIMAB
     Dosage: 750 MG, CYCLICAL
     Route: 042
     Dates: start: 20230502, end: 20230504
  4. BENDAMUSTINE [Suspect]
     Active Substance: BENDAMUSTINE
     Indication: Chronic lymphocytic leukaemia
     Dosage: 101.3 MG, CYCLICAL
     Route: 042
     Dates: start: 20221109, end: 20221109
  5. BENDAMUSTINE [Suspect]
     Active Substance: BENDAMUSTINE
     Dosage: 135 MG, CYCLICAL
     Route: 042
     Dates: start: 20221207, end: 20230309
  6. BENDAMUSTINE [Suspect]
     Active Substance: BENDAMUSTINE
     Dosage: 75 MG, CYCLICAL
     Route: 042
     Dates: start: 20230502, end: 20230504
  7. HYDROCHLOROTHIAZIDE\VALSARTAN [Concomitant]
     Active Substance: HYDROCHLOROTHIAZIDE\VALSARTAN
     Dosage: UNK
     Dates: start: 2015
  8. GEMIGLIPTIN\METFORMIN [Concomitant]
     Active Substance: GEMIGLIPTIN\METFORMIN
     Indication: Type 2 diabetes mellitus
     Dosage: UNK
     Dates: start: 2020
  9. ATORVASTATIN [Concomitant]
     Active Substance: ATORVASTATIN
     Indication: Hypertension
     Dosage: UNK
     Dates: start: 2015
  10. QUETIAPINE [Concomitant]
     Active Substance: QUETIAPINE
     Indication: Bipolar disorder
     Dosage: UNK
     Dates: start: 2018
  11. DIASTASE\LIPASE\URSODIOL [Concomitant]
     Active Substance: DIASTASE\LIPASE\URSODIOL
     Dosage: UNK
     Dates: start: 2015
  12. IMIPRAMINE HYDROCHLORIDE [Concomitant]
     Active Substance: IMIPRAMINE HYDROCHLORIDE
     Indication: Bipolar disorder
     Dosage: UNK
     Dates: start: 2018
  13. CHOLINE ALFOSCERATE [Concomitant]
     Active Substance: CHOLINE ALFOSCERATE
  14. CLONAZEPAM [Concomitant]
     Active Substance: CLONAZEPAM
     Indication: Insomnia
     Dosage: UNK
     Dates: start: 2018
  15. FLURAZEPAM HYDROCHLORIDE [Concomitant]
     Active Substance: FLURAZEPAM HYDROCHLORIDE
     Indication: Insomnia
     Dosage: UNK
     Dates: start: 2018
  16. AVOCADO\SOYBEAN OIL [Concomitant]
     Active Substance: AVOCADO\SOYBEAN OIL
     Indication: Osteoarthritis
     Dosage: UNK
     Dates: start: 2018
  17. VICAFEROL [Concomitant]
     Indication: Nutritional supplementation
     Dosage: UNK
     Dates: start: 2018

REACTIONS (2)
  - Cytomegalovirus oesophagitis [Recovered/Resolved]
  - Oesophageal ulcer [Recovered/Resolved]

NARRATIVE: CASE EVENT DATE: 20230407
